FAERS Safety Report 4727744-6 (Version None)
Quarter: 2005Q3

REPORT INFORMATION
  Report Type: 
  Country: None (occurrence: None)
  Receive Date: 20050727
  Receipt Date: 20050711
  Transmission Date: 20060218
  Serious: Yes (Hospitalization)
  Sender: FDA-Public Use
  Company Number: DSA_26754_2005

PATIENT
  Age: 80 Year
  Sex: Female

DRUGS (6)
  1. LORAZEPAM [Suspect]
     Dosage: DF Q DAY PO
     Route: 048
     Dates: end: 20050524
  2. LORAZEPAM [Suspect]
     Dates: start: 20050525, end: 20050525
  3. LORAZEPAM [Suspect]
     Dates: start: 20050524
  4. ALDACTAZINE [Suspect]
     Dosage: DF  PO
     Route: 048
     Dates: end: 20050524
  5. DETENSIEL [Suspect]
     Dosage: DF  PO
     Route: 048
  6. LASIX [Suspect]
     Dosage: DF

REACTIONS (5)
  - BLOOD CREATININE INCREASED [None]
  - COMA [None]
  - GENERAL PHYSICAL HEALTH DETERIORATION [None]
  - INCORRECT DOSE ADMINISTERED [None]
  - MALAISE [None]
